FAERS Safety Report 18773742 (Version 1)
Quarter: 2021Q1

REPORT INFORMATION
  Report Type: Spontaneous
  Country: US (occurrence: US)
  Receive Date: 20210121
  Receipt Date: 20210121
  Transmission Date: 20210419
  Serious: Yes (Hospitalization)
  Sender: FDA-Public Use
  Company Number: None

PATIENT
  Age: 71 Year
  Sex: Male
  Weight: 67 kg

DRUGS (2)
  1. GLECAPREVIR/PIBRENTASVIR (GLECAPREVIR 100MG/PIBRENTASIVIR 40MG TAB) [Suspect]
     Active Substance: GLECAPREVIR\PIBRENTASVIR
     Indication: HEPATITIS C
     Dosage: OTHER DOSE:300/120 MG
     Route: 048
     Dates: start: 20200820
  2. APIXABAN (APIXABAN 2.5MG TAB) [Suspect]
     Active Substance: APIXABAN
     Indication: ATRIAL FIBRILLATION
     Route: 048
     Dates: start: 20171122, end: 20201024

REACTIONS (1)
  - Anaemia [None]

NARRATIVE: CASE EVENT DATE: 20201022
